FAERS Safety Report 4600989-1 (Version None)
Quarter: 2005Q1

REPORT INFORMATION
  Report Type: 
  Country: None (occurrence: None)
  Receive Date: 20050307
  Receipt Date: 20050307
  Transmission Date: 20050727
  Serious: Yes (Hospitalization)
  Sender: FDA-Public Use
  Company Number: None

PATIENT
  Age: 80 Year
  Sex: Female

DRUGS (2)
  1. CANPAC-ALLOSOURCE 24416100 (BONE PRODUCT-ALLOGRAFT) [Suspect]
  2. CANPAC-ALLOSOURCE 24416100 (BONE PRODUCT-ALLOGRAFT) [Suspect]

REACTIONS (2)
  - BACTEROIDES INFECTION [None]
  - GRAFT INFECTION [None]
